FAERS Safety Report 9083958 (Version 2)
Quarter: 2013Q4

REPORT INFORMATION
  Report Type: Spontaneous
  Country: GB (occurrence: GB)
  Receive Date: 20130130
  Receipt Date: 20131011
  Transmission Date: 20140711
  Serious: Yes (Other)
  Sender: FDA-Public Use
  Company Number: GB-JNJFOC-20130112510

PATIENT
  Age: 66 Year
  Sex: Female
  Weight: 89 kg

DRUGS (7)
  1. SUDAFED [Suspect]
     Indication: NASAL OBSTRUCTION
     Route: 048
     Dates: start: 20121130, end: 20121130
  2. SUDAFED [Suspect]
     Indication: NASAL OBSTRUCTION
     Route: 048
     Dates: start: 20121130, end: 20121130
  3. AZILECT [Interacting]
     Indication: PRODUCT USED FOR UNKNOWN INDICATION
  4. REGURIN [Concomitant]
  5. REQUIP [Concomitant]
  6. SINEMET [Concomitant]
     Dosage: 25MG/100MG
  7. SINEMET CR [Concomitant]
     Dosage: 50MG+200MG

REACTIONS (7)
  - Headache [Recovered/Resolved]
  - Feeling hot [Recovered/Resolved]
  - Hyperhidrosis [Recovered/Resolved]
  - Nausea [Recovered/Resolved]
  - Tremor [Recovered/Resolved]
  - Vomiting [Recovered/Resolved]
  - Drug interaction [Unknown]
